FAERS Safety Report 5402327-3 (Version None)
Quarter: 2007Q3

REPORT INFORMATION
  Report Type: 
  Country: None (occurrence: None)
  Receive Date: 20070801
  Receipt Date: 20070725
  Transmission Date: 20080115
  Serious: Yes (Other)
  Sender: FDA-Public Use
  Company Number: AR-AVENTIS-200716838GDDC

PATIENT
  Age: 32 Year
  Sex: Female

DRUGS (1)
  1. FLAGYL [Suspect]
     Route: 048
     Dates: start: 20070521, end: 20070527

REACTIONS (2)
  - DRUG EXPOSURE DURING PREGNANCY [None]
  - STILLBIRTH [None]
